FAERS Safety Report 7657419-5 (Version None)
Quarter: 2011Q3

REPORT INFORMATION
  Report Type: 
  Country: None (occurrence: None)
  Receive Date: 20110804
  Receipt Date: 20110727
  Transmission Date: 20111222
  Serious: Yes (Hospitalization, Other)
  Sender: FDA-Public Use
  Company Number: US-CEPHALON-2011003784

PATIENT
  Sex: Female
  Weight: 48 kg

DRUGS (12)
  1. KLONOPIN [Concomitant]
  2. SIMVASTATIN [Concomitant]
  3. TRANSCOPE [Concomitant]
  4. PROVIGIL [Suspect]
     Indication: CHRONIC FATIGUE SYNDROME
     Route: 048
     Dates: start: 20060101
  5. PRISTIQ [Concomitant]
  6. TIGAN [Concomitant]
  7. DECADRONE [Concomitant]
  8. ASPIRIN [Concomitant]
  9. HYDROCHLOROTHIAZIDE [Concomitant]
  10. LISINOPRIL [Concomitant]
  11. AMLODIPINE [Concomitant]
  12. PREVACID [Concomitant]

REACTIONS (14)
  - HAEMATOCRIT DECREASED [None]
  - CONSTIPATION [None]
  - OROPHARYNGEAL PAIN [None]
  - DRUG INEFFECTIVE FOR UNAPPROVED INDICATION [None]
  - COELIAC DISEASE [None]
  - GASTROINTESTINAL SURGERY [None]
  - ULCER [None]
  - HAEMOGLOBIN DECREASED [None]
  - FEELING ABNORMAL [None]
  - MUSCULAR WEAKNESS [None]
  - INSOMNIA [None]
  - DYSGRAPHIA [None]
  - DIARRHOEA [None]
  - TRANSIENT ISCHAEMIC ATTACK [None]
